FAERS Safety Report 6485369-9 (Version None)
Quarter: 2009Q4

REPORT INFORMATION
  Report Type: 
  Country: None (occurrence: None)
  Receive Date: 20091209
  Receipt Date: 20090622
  Transmission Date: 20100525
  Serious: No
  Sender: FDA-Public Use
  Company Number: US-AMGEN-KDL352830

PATIENT
  Sex: Female

DRUGS (2)
  1. ENBREL [Suspect]
     Indication: RHEUMATOID ARTHRITIS
     Route: 058
     Dates: start: 20090526
  2. SULFASALAZINE [Concomitant]
     Dates: start: 20080601

REACTIONS (3)
  - CONTUSION [None]
  - ERYTHEMA [None]
  - URTICARIA [None]
